FAERS Safety Report 5971193-X (Version None)
Quarter: 2008Q4

REPORT INFORMATION
  Report Type: 
  Country: None (occurrence: None)
  Receive Date: 20081128
  Receipt Date: 20081117
  Transmission Date: 20090506
  Serious: Yes (Hospitalization)
  Sender: FDA-Public Use
  Company Number: GB-ROCHE-597763

PATIENT
  Age: 61 Year
  Sex: Male

DRUGS (5)
  1. CELLCEPT [Suspect]
     Route: 065
  2. DACLIZUMAB [Suspect]
     Route: 065
  3. MYFORTIC [Suspect]
     Route: 065
  4. NEORAL [Suspect]
     Route: 065
  5. PREDNISOLONE [Suspect]
     Route: 065

REACTIONS (15)
  - ABDOMINAL TENDERNESS [None]
  - CAMPYLOBACTER INFECTION [None]
  - COMPLICATIONS OF TRANSPLANT SURGERY [None]
  - CYTOMEGALOVIRUS COLITIS [None]
  - DEHYDRATION [None]
  - DIARRHOEA [None]
  - FATIGUE [None]
  - HEPATIC FUNCTION ABNORMAL [None]
  - HYPOTENSION [None]
  - LIVER FUNCTION TEST ABNORMAL [None]
  - METABOLIC ACIDOSIS [None]
  - RENAL CYST [None]
  - RENAL FAILURE ACUTE [None]
  - THROMBOCYTOPENIA [None]
  - WEIGHT DECREASED [None]
